FAERS Safety Report 5521875-9 (Version None)
Quarter: 2007Q4

REPORT INFORMATION
  Report Type: 
  Country: None (occurrence: None)
  Receive Date: 20071120
  Receipt Date: 20071026
  Transmission Date: 20080405
  Serious: Yes (Hospitalization)
  Sender: FDA-Public Use
  Company Number: ES-NOVOPROD-269390

PATIENT
  Sex: Female
  Weight: 3.56 kg

DRUGS (4)
  1. LEVEMIR [Suspect]
     Indication: GESTATIONAL DIABETES
     Dosage: 10-15 IU
     Route: 015
  2. NOVORAPID FLEXPEN [Suspect]
     Indication: GESTATIONAL DIABETES
     Route: 015
  3. ALDOMET                            /00000101/ [Concomitant]
     Route: 015
  4. ANTIBIOTICS [Concomitant]
     Route: 015

REACTIONS (7)
  - CAESAREAN SECTION [None]
  - DIABETIC FOETOPATHY [None]
  - DRUG EXPOSURE DURING PREGNANCY [None]
  - HYPOGLYCAEMIA [None]
  - JAUNDICE NEONATAL [None]
  - PULMONARY ARTERIAL PRESSURE INCREASED [None]
  - TRICUSPID VALVE INCOMPETENCE [None]
